FAERS Safety Report 7769227-5 (Version None)
Quarter: 2011Q3

REPORT INFORMATION
  Report Type: 
  Country: None (occurrence: None)
  Receive Date: 20110922
  Receipt Date: 20110912
  Transmission Date: 20111222
  Serious: Yes (Other)
  Sender: FDA-Public Use
  Company Number: FR-CELGENEUS-056-50794-11091477

PATIENT

DRUGS (2)
  1. VIDAZA [Suspect]
     Route: 050
  2. VIDAZA [Suspect]
     Route: 050

REACTIONS (1)
  - METASTATIC MALIGNANT MELANOMA [None]
